FAERS Safety Report 9313101 (Version 1)
Quarter: 2013Q2

REPORT INFORMATION
  Report Type: Report from Study
  Country: US (occurrence: US)
  Receive Date: 20130528
  Receipt Date: 20130528
  Transmission Date: 20140414
  Serious: No
  Sender: FDA-Public Use
  Company Number: US-ABBOTT-13P-163-1057646-00

PATIENT
  Sex: Male
  Weight: 72.64 kg

DRUGS (4)
  1. ANDROGEL 1.62% [Suspect]
     Indication: BLOOD TESTOSTERONE DECREASED
     Dosage: 2 PUMP ACTUATIONS
     Dates: start: 201205
  2. ANDROGEL 1.62% [Suspect]
     Dosage: 5 GM PACKET
  3. ANDROGEL 1.62% [Suspect]
  4. OMEPRAZOLE [Concomitant]
     Indication: GASTROOESOPHAGEAL REFLUX DISEASE

REACTIONS (2)
  - Feeling abnormal [Recovered/Resolved]
  - Drug dose omission [Not Recovered/Not Resolved]
